FAERS Safety Report 5538299-0 (Version None)
Quarter: 2007Q4

REPORT INFORMATION
  Report Type: 
  Country: None (occurrence: None)
  Receive Date: 20071205
  Receipt Date: 20071128
  Transmission Date: 20080405
  Serious: Yes (Hospitalization)
  Sender: FDA-Public Use
  Company Number: 163-21880-07011183

PATIENT
  Age: 59 Year
  Sex: Male
  Weight: 69 kg

DRUGS (11)
  1. REVLIMID [Suspect]
     Indication: CHRONIC LYMPHOCYTIC LEUKAEMIA
     Dosage: 10 MG, 1 IN 1 D, ORAL
     Route: 048
     Dates: start: 20070116, end: 20070121
  2. REVLIMID [Suspect]
     Indication: CHRONIC LYMPHOCYTIC LEUKAEMIA
     Dosage: 10 MG, 1 IN 1 D, ORAL
     Route: 048
     Dates: end: 20070215
  3. VALTREX [Concomitant]
  4. ITRACONAZOLE [Concomitant]
  5. DITROPAN XL [Concomitant]
  6. CYMBALTA [Concomitant]
  7. TEMAZEPAM [Concomitant]
  8. VANCOMYCIN [Concomitant]
  9. IVIG                         (IMMUNOGLOBULIN) [Concomitant]
  10. PENTAMIDINE                               (PENTAMIDINE) [Concomitant]
  11. ALLOPURINOL [Concomitant]

REACTIONS (6)
  - CONDITION AGGRAVATED [None]
  - FEBRILE NEUTROPENIA [None]
  - LYMPHADENOPATHY [None]
  - SPLENOMEGALY [None]
  - TUMOUR FLARE [None]
  - WHITE BLOOD CELL COUNT INCREASED [None]
